FAERS Safety Report 23030226 (Version 3)
Quarter: 2024Q3

REPORT INFORMATION
  Report Type: Report from Study
  Country: US (occurrence: US)
  Receive Date: 20231005
  Receipt Date: 20240708
  Transmission Date: 20241017
  Serious: Yes (Hospitalization, Other)
  Sender: NOVO NORDISK
  Company Number: US-NOVOPROD-1123314

PATIENT
  Age: 45 Year
  Sex: Male

DRUGS (8)
  1. METFORMIN [Concomitant]
     Active Substance: METFORMIN HYDROCHLORIDE
     Indication: Type 2 diabetes mellitus
     Dosage: UNK
     Route: 048
  2. METFORMIN [Concomitant]
     Active Substance: METFORMIN HYDROCHLORIDE
     Indication: Product used for unknown indication
  3. LISINOPRIL [Concomitant]
     Active Substance: LISINOPRIL
     Indication: Hypertension
     Dosage: UNK
  4. MELOXICAM [Concomitant]
     Active Substance: MELOXICAM
     Indication: Arthritis
  5. MELOXICAM [Concomitant]
     Active Substance: MELOXICAM
     Indication: Blood pressure measurement
     Dosage: UNK
  6. OZEMPIC [Suspect]
     Active Substance: SEMAGLUTIDE
     Indication: Hyperglycaemia
     Dosage: 1MG
     Route: 058
  7. OZEMPIC [Suspect]
     Active Substance: SEMAGLUTIDE
     Indication: Weight control
     Dosage: 0.5MG
     Route: 058
  8. OZEMPIC [Suspect]
     Active Substance: SEMAGLUTIDE
     Indication: Type 2 diabetes mellitus
     Dosage: 0.25MG
     Route: 058
     Dates: start: 202304

REACTIONS (10)
  - Facial paralysis [Recovered/Resolved]
  - Impaired gastric emptying [Not Recovered/Not Resolved]
  - Hypoaesthesia [Not Recovered/Not Resolved]
  - Lip pain [Not Recovered/Not Resolved]
  - Facial pain [Not Recovered/Not Resolved]
  - Feeling abnormal [Unknown]
  - Paraesthesia [Unknown]
  - Decreased appetite [Not Recovered/Not Resolved]
  - Dyspepsia [Not Recovered/Not Resolved]
  - Abdominal pain upper [Not Recovered/Not Resolved]

NARRATIVE: CASE EVENT DATE: 20230401
